FAERS Safety Report 10669186 (Version 8)
Quarter: 2020Q1

REPORT INFORMATION
  Report Type: Report from Study
  Country: US (occurrence: US)
  Receive Date: 20141222
  Receipt Date: 20200319
  Transmission Date: 20200409
  Serious: Yes (Hospitalization, Disabling, Other)
  Sender: FDA-Public Use
  Company Number: US-SA-2014SA174138

PATIENT
  Age: 59 Year
  Sex: Female
  Weight: 47.6 kg

DRUGS (16)
  1. KLONOPIN [Concomitant]
     Active Substance: CLONAZEPAM
     Dosage: UNK
  2. TERIFLUNOMIDE. [Suspect]
     Active Substance: TERIFLUNOMIDE
     Dosage: 14 MG,QD
     Route: 048
     Dates: start: 20141216
  3. OXYCODONE [Concomitant]
     Active Substance: OXYCODONE
  4. PARACETAMOL [Concomitant]
     Active Substance: ACETAMINOPHEN
     Dosage: UNK
  5. TERIFLUNOMIDE. [Suspect]
     Active Substance: TERIFLUNOMIDE
     Dosage: 1 DF, QM
     Route: 048
     Dates: start: 201410
  6. TRIMETHOPRIM SULFAMETHOXAZOLE [Concomitant]
     Active Substance: SULFAMETHOXAZOLE\TRIMETHOPRIM
  7. TERIFLUNOMIDE. [Suspect]
     Active Substance: TERIFLUNOMIDE
     Indication: MULTIPLE SCLEROSIS
     Dosage: 14 MG,QD
     Route: 048
     Dates: start: 20141002
  8. TERIFLUNOMIDE. [Suspect]
     Active Substance: TERIFLUNOMIDE
     Dosage: 14 MG,QD
     Route: 048
     Dates: start: 20141002
  9. TERIFLUNOMIDE. [Suspect]
     Active Substance: TERIFLUNOMIDE
     Dosage: 14 MG,QD
     Route: 048
  10. TERIFLUNOMIDE. [Suspect]
     Active Substance: TERIFLUNOMIDE
     Dosage: 14 MG,QD
     Route: 048
     Dates: start: 20150926
  11. TERIFLUNOMIDE. [Suspect]
     Active Substance: TERIFLUNOMIDE
     Dosage: 14 MG,QD
     Route: 048
     Dates: start: 20141216
  12. TERIFLUNOMIDE. [Suspect]
     Active Substance: TERIFLUNOMIDE
     Dosage: 14 MG,QD
     Route: 048
     Dates: start: 20150710, end: 201509
  13. TUMS [Concomitant]
     Active Substance: CALCIUM CARBONATE
     Dosage: UNK
  14. TRAMADOL HCL [Concomitant]
     Active Substance: TRAMADOL HYDROCHLORIDE
  15. ZESTRIL [Concomitant]
     Active Substance: LISINOPRIL
     Dosage: UNK
  16. AMITRIPTYLINE HCL [Concomitant]
     Active Substance: AMITRIPTYLINE
     Dosage: 25 MG

REACTIONS (32)
  - Chronic obstructive pulmonary disease [Not Recovered/Not Resolved]
  - Muscular weakness [Not Recovered/Not Resolved]
  - Femur fracture [Unknown]
  - Ovarian cyst [Unknown]
  - Tremor [Unknown]
  - Balance disorder [Unknown]
  - Pneumonia [Unknown]
  - Arthralgia [Unknown]
  - Tooth extraction [Unknown]
  - Fall [Unknown]
  - Pelvic fracture [Not Recovered/Not Resolved]
  - Pain [Recovering/Resolving]
  - Salpingo-oophorectomy bilateral [Unknown]
  - Nerve compression [Unknown]
  - Back pain [Not Recovered/Not Resolved]
  - Pyrexia [Unknown]
  - Post procedural complication [Unknown]
  - Contusion [Not Recovered/Not Resolved]
  - Bronchitis [Recovering/Resolving]
  - Restless legs syndrome [Unknown]
  - Hip arthroplasty [Unknown]
  - Hip surgery [Unknown]
  - Fractured sacrum [Not Recovered/Not Resolved]
  - Lumbar vertebral fracture [Not Recovered/Not Resolved]
  - Chest X-ray abnormal [Not Recovered/Not Resolved]
  - Hypoaesthesia [Unknown]
  - Arthritis [Unknown]
  - Upper respiratory tract infection [Unknown]
  - Depression [Unknown]
  - Cyst [Recovered/Resolved]
  - Face injury [Unknown]
  - Pain in extremity [Unknown]

NARRATIVE: CASE EVENT DATE: 2014
